FAERS Safety Report 23770304 (Version 4)
Quarter: 2024Q3

REPORT INFORMATION
  Report Type: Spontaneous
  Country: JP (occurrence: None)
  Receive Date: 20240422
  Receipt Date: 20240703
  Transmission Date: 20241016
  Serious: Yes (Death)
  Sender: ASTRAZENECA
  Company Number: 2024A092453

PATIENT
  Age: 75 Year
  Sex: Female
  Weight: 66 kg

DRUGS (14)
  1. SAPHNELO [Suspect]
     Active Substance: ANIFROLUMAB-FNIA
     Indication: Systemic lupus erythematosus
     Route: 041
     Dates: start: 20240215, end: 20240314
  2. PREDONINE [Suspect]
     Active Substance: PREDNISOLONE
     Indication: Systemic lupus erythematosus
     Route: 048
     Dates: start: 20240326
  3. PREDNISOLONE [Suspect]
     Active Substance: PREDNISOLONE
     Indication: Systemic lupus erythematosus
     Route: 048
     Dates: start: 20240326
  4. PLAQUENIL [Suspect]
     Active Substance: HYDROXYCHLOROQUINE SULFATE
     Indication: Systemic lupus erythematosus
     Dosage: 200 MG/400 MG
     Route: 048
     Dates: start: 20190801
  5. SULFAMETHOXAZOLE\TRIMETHOPRIM [Concomitant]
     Active Substance: SULFAMETHOXAZOLE\TRIMETHOPRIM
     Indication: Systemic lupus erythematosus
     Route: 048
     Dates: start: 20231114
  6. ELDECALCITOL [Concomitant]
     Active Substance: ELDECALCITOL
     Route: 048
     Dates: start: 20230817
  7. JADENU [Concomitant]
     Active Substance: DEFERASIROX
     Indication: Aplasia pure red cell
     Route: 048
     Dates: start: 20230817
  8. POLAPREZINC [Concomitant]
     Active Substance: POLAPREZINC
     Route: 048
  9. HYDROXYCHLOROQUINE SULFATE [Concomitant]
     Active Substance: HYDROXYCHLOROQUINE SULFATE
     Dosage: 200 MG/400 MG
  10. NEORAL [Concomitant]
     Active Substance: CYCLOSPORINE
     Dosage: 100.0MG UNKNOWN
     Dates: start: 20231122
  11. NEORAL [Concomitant]
     Active Substance: CYCLOSPORINE
     Dosage: 150.0MG UNKNOWN
  12. VEKLURY [Concomitant]
     Active Substance: REMDESIVIR
  13. DEXAMETHASONE [Concomitant]
     Active Substance: DEXAMETHASONE
  14. PREDNISOLONE [Concomitant]
     Active Substance: PREDNISOLONE
     Indication: Systemic lupus erythematosus
     Route: 048
     Dates: start: 20240208, end: 20240325

REACTIONS (2)
  - Influenza [Fatal]
  - Computerised tomogram abnormal [Unknown]

NARRATIVE: CASE EVENT DATE: 20240403
